FAERS Safety Report 9030156 (Version 1)
Quarter: 2013Q1

REPORT INFORMATION
  Report Type: Spontaneous
  Country: US (occurrence: US)
  Receive Date: 20130125
  Receipt Date: 20130125
  Transmission Date: 20140127
  Serious: No
  Sender: FDA-Public Use
  Company Number: US-PFIZER INC-2013029222

PATIENT
  Age: 19 Year
  Sex: Male

DRUGS (2)
  1. ZOLOFT [Suspect]
     Indication: MENTAL DISORDER
     Dosage: 50 MG, UNK
     Dates: start: 201212
  2. VITAMIN B COMPLEX [Concomitant]
     Dosage: UNK

REACTIONS (1)
  - Blood bilirubin increased [Unknown]
